APPROVED DRUG PRODUCT: NIX
Active Ingredient: PERMETHRIN
Strength: 1% **Federal Register determination that product was not discontinued or withdrawn for safety or effectiveness reasons**
Dosage Form/Route: LOTION;TOPICAL
Application: N019435 | Product #001
Applicant: GLAXOSMITHKLINE
Approved: Mar 31, 1986 | RLD: No | RS: No | Type: DISCN